FAERS Safety Report 23741452 (Version 4)
Quarter: 2024Q2

REPORT INFORMATION
  Report Type: Spontaneous
  Country: US (occurrence: US)
  Receive Date: 20240415
  Receipt Date: 20240516
  Transmission Date: 20240716
  Serious: Yes (Hospitalization)
  Sender: FDA-Public Use
  Company Number: US-PADAGIS-2024PAD00577

PATIENT

DRUGS (1)
  1. KETOCONAZOLE [Suspect]
     Active Substance: KETOCONAZOLE
     Indication: Skin exfoliation
     Dosage: UNK
     Route: 061

REACTIONS (12)
  - Periorbital swelling [Not Recovered/Not Resolved]
  - Eye pain [Not Recovered/Not Resolved]
  - Eye irritation [Not Recovered/Not Resolved]
  - Headache [Not Recovered/Not Resolved]
  - Eye infection [Not Recovered/Not Resolved]
  - Adverse drug reaction [Unknown]
  - Visual impairment [Unknown]
  - Skin injury [Unknown]
  - Eye injury [Unknown]
  - Skin exfoliation [Unknown]
  - Skin burning sensation [Not Recovered/Not Resolved]
  - Product use in unapproved indication [Unknown]
